FAERS Safety Report 5311385-6 (Version None)
Quarter: 2007Q2

REPORT INFORMATION
  Report Type: 
  Country: None (occurrence: None)
  Receive Date: 20070430
  Receipt Date: 20070420
  Transmission Date: 20071010
  Serious: Yes (Other)
  Sender: FDA-Public Use
  Company Number: US-JNJFOC-20070405124

PATIENT
  Sex: Male
  Weight: 108.86 kg

DRUGS (9)
  1. DURAGESIC-100 [Suspect]
     Indication: BACK PAIN
     Route: 062
  2. ZEBETA [Concomitant]
     Indication: CARDIAC DISORDER
     Route: 048
  3. DOXEPIN HCL [Concomitant]
     Indication: SLEEP DISORDER
     Route: 048
  4. LEXAPRO [Concomitant]
     Indication: DEPRESSION
     Route: 048
  5. DALMANE [Concomitant]
     Indication: SLEEP DISORDER
     Route: 048
  6. VALIUM [Concomitant]
     Indication: ANXIETY
     Route: 048
  7. SOMA [Concomitant]
     Indication: MYALGIA
     Route: 048
  8. MAVIK [Concomitant]
     Indication: BLOOD PRESSURE
     Route: 048
  9. FUROSEMIDE [Concomitant]
     Indication: DIURETIC THERAPY
     Route: 048

REACTIONS (4)
  - DYSURIA [None]
  - HYPERTENSION [None]
  - PAIN [None]
  - PROSTATIC DISORDER [None]
